FAERS Safety Report 6691458-6 (Version None)
Quarter: 2010Q2

REPORT INFORMATION
  Report Type: 
  Country: None (occurrence: None)
  Receive Date: 20100422
  Receipt Date: 20100420
  Transmission Date: 20101027
  Serious: Yes (Life-Threatening, Hospitalization)
  Sender: FDA-Public Use
  Company Number: NO-MPIJNJ-2010-02251

PATIENT

DRUGS (7)
  1. VELCADE [Suspect]
     Indication: DRUG USE FOR UNKNOWN INDICATION
     Dosage: 2.6 MG, UNK
     Route: 065
  2. DEXAMETHASONE [Suspect]
     Indication: DRUG USE FOR UNKNOWN INDICATION
     Dosage: 20 MG, UNK
     Route: 065
  3. IMOVANE [Concomitant]
     Dosage: 7.5 MG, UNK
  4. OXYCODONE HCL [Concomitant]
     Dosage: 5 MG, UNK
  5. PARACETAMOL [Concomitant]
     Dosage: 1 G, UNK
  6. RANITIDINE [Concomitant]
     Dosage: 300 MG, UNK
  7. OXYCONTIN [Concomitant]
     Dosage: 20 MG, UNK

REACTIONS (2)
  - COLITIS [None]
  - MELAENA [None]
